FAERS Safety Report 6824388-7 (Version None)
Quarter: 2010Q3

REPORT INFORMATION
  Report Type: 
  Country: None (occurrence: None)
  Receive Date: 20100708
  Receipt Date: 20061020
  Transmission Date: 20110219
  Serious: No
  Sender: FDA-Public Use
  Company Number: US-PFIZER INC-2006128755

PATIENT
  Sex: Male
  Weight: 90.72 kg

DRUGS (3)
  1. CHANTIX [Suspect]
     Indication: SMOKING CESSATION THERAPY
     Route: 048
     Dates: start: 20060908
  2. MULTI-VITAMINS [Concomitant]
  3. ZYRTEC [Concomitant]

REACTIONS (4)
  - ABNORMAL DREAMS [None]
  - FATIGUE [None]
  - HEADACHE [None]
  - NAUSEA [None]
